FAERS Safety Report 7517424-6 (Version None)
Quarter: 2011Q2

REPORT INFORMATION
  Report Type: 
  Country: None (occurrence: None)
  Receive Date: 20110601
  Receipt Date: 20110527
  Transmission Date: 20111010
  Serious: Yes (Hospitalization, Disabling, Other)
  Sender: FDA-Public Use
  Company Number: US-PFIZER INC-2011096355

PATIENT
  Age: 56 Year
  Sex: Female

DRUGS (8)
  1. TAZTIA XT [Concomitant]
     Indication: BLOOD PRESSURE ABNORMAL
     Dosage: 240 MG, 2X/DAY
     Route: 048
  2. LYRICA [Suspect]
     Dosage: 150 MG, 3X/DAY
     Dates: start: 20100525, end: 20100601
  3. METHOTREXATE [Concomitant]
     Dosage: 2.5 MG 5 TABLETS A WEEK
     Route: 048
  4. FOSAMAX [Concomitant]
     Indication: BLOOD PRESSURE ABNORMAL
     Dosage: UNK
     Route: 048
  5. LISINOPRIL [Concomitant]
     Indication: BLOOD PRESSURE ABNORMAL
     Dosage: UNK
  6. LYRICA [Suspect]
     Indication: FIBROMYALGIA
     Dosage: 100 MG, UNK
     Route: 048
     Dates: start: 20100401, end: 20100101
  7. NITROGLYCERIN [Concomitant]
     Indication: ANGIOPLASTY
     Dosage: 0.4 MG, UNK
  8. MAVIK [Concomitant]
     Indication: BLOOD PRESSURE ABNORMAL
     Dosage: 4 MG, UNK
     Route: 048

REACTIONS (5)
  - BLISTER [None]
  - WALKING AID USER [None]
  - COMA [None]
  - OROPHARYNGEAL BLISTERING [None]
  - RENAL FAILURE [None]
